FAERS Safety Report 20152466 (Version 1)
Quarter: 2021Q4

REPORT INFORMATION
  Report Type: Spontaneous
  Country: DE (occurrence: DE)
  Receive Date: 20211206
  Receipt Date: 20211206
  Transmission Date: 20220303
  Serious: Yes (Hospitalization, Other)
  Sender: FDA-Public Use
  Company Number: DE-PFIZER INC-202101373267

PATIENT
  Age: 57 Year
  Sex: Male
  Weight: 76 kg

DRUGS (3)
  1. TOLTERODINE [Suspect]
     Active Substance: TOLTERODINE
     Indication: Product used for unknown indication
     Dosage: UNK
  2. OXYBUTYNIN [Suspect]
     Active Substance: OXYBUTYNIN
     Indication: Product used for unknown indication
     Dosage: UNK
  3. MIRABEGRON [Concomitant]
     Active Substance: MIRABEGRON
     Dosage: UNK

REACTIONS (19)
  - Bladder dysfunction [Unknown]
  - Sensation of foreign body [Unknown]
  - COVID-19 [Unknown]
  - Cerebrovascular accident [Unknown]
  - Erectile dysfunction [Unknown]
  - Tick-borne viral encephalitis [Unknown]
  - Hemiplegia [Unknown]
  - Guillain-Barre syndrome [Unknown]
  - Paraesthesia [Unknown]
  - Amnesia [Unknown]
  - Depression [Unknown]
  - Functional gastrointestinal disorder [Unknown]
  - Anorectal disorder [Unknown]
  - Hypoaesthesia [Unknown]
  - Parosmia [Unknown]
  - Gait disturbance [Unknown]
  - Disturbance in attention [Unknown]
  - Photophobia [Unknown]
  - Dysphagia [Unknown]

NARRATIVE: CASE EVENT DATE: 20200401
